FAERS Safety Report 13199827 (Version 8)
Quarter: 2017Q4

REPORT INFORMATION
  Report Type: Report from Study
  Country: US (occurrence: US)
  Receive Date: 20170208
  Receipt Date: 20171102
  Transmission Date: 20180320
  Serious: Yes (Hospitalization)
  Sender: FDA-Public Use
  Company Number: US-ACTELION-A-NJ2017-149593

PATIENT
  Age: 37 Year
  Sex: Female
  Weight: 113.38 kg

DRUGS (5)
  1. UPTRAVI [Suspect]
     Active Substance: SELEXIPAG
     Dosage: 1400 MCG, BID
     Route: 048
  2. ADEMPAS [Concomitant]
     Active Substance: RIOCIGUAT
  3. UPTRAVI [Suspect]
     Active Substance: SELEXIPAG
     Dosage: 600 MCG, BID
     Route: 048
     Dates: start: 20161222
  4. UPTRAVI [Suspect]
     Active Substance: SELEXIPAG
     Indication: PULMONARY HYPERTENSION
     Dosage: 1200 MCG, BID
     Route: 048
  5. OXYGEN. [Concomitant]
     Active Substance: OXYGEN

REACTIONS (10)
  - Sickle cell anaemia [Unknown]
  - Haemoglobin decreased [Not Recovered/Not Resolved]
  - Transfusion [Unknown]
  - Pneumonia [Unknown]
  - Pain in jaw [Not Recovered/Not Resolved]
  - Drug dose omission [Unknown]
  - Oedema [Unknown]
  - Neck pain [Not Recovered/Not Resolved]
  - Pulmonary arterial hypertension [Unknown]
  - Headache [Not Recovered/Not Resolved]
